FAERS Safety Report 24850939 (Version 1)
Quarter: 2025Q1

REPORT INFORMATION
  Report Type: Spontaneous
  Country: US (occurrence: US)
  Receive Date: 20250116
  Receipt Date: 20250116
  Transmission Date: 20250408
  Serious: No
  Sender: ELI LILLY AND COMPANY
  Company Number: US-ELI_LILLY_AND_COMPANY-US202501010252

PATIENT
  Age: 75 Year
  Sex: Female

DRUGS (6)
  1. TRULICITY [Suspect]
     Active Substance: DULAGLUTIDE
     Indication: Product used for unknown indication
     Route: 065
     Dates: start: 2024
  2. TRULICITY [Suspect]
     Active Substance: DULAGLUTIDE
     Indication: Product used for unknown indication
     Route: 065
     Dates: start: 2024
  3. TRULICITY [Suspect]
     Active Substance: DULAGLUTIDE
     Route: 065
  4. TRULICITY [Suspect]
     Active Substance: DULAGLUTIDE
     Route: 065
  5. TRULICITY [Suspect]
     Active Substance: DULAGLUTIDE
     Route: 065
  6. TRULICITY [Suspect]
     Active Substance: DULAGLUTIDE
     Route: 065

REACTIONS (3)
  - Injection site pain [Unknown]
  - Product dose omission issue [Unknown]
  - Injection site erythema [Unknown]
